FAERS Safety Report 14031691 (Version 1)
Quarter: 2017Q4

REPORT INFORMATION
  Report Type: Spontaneous
  Country: GB (occurrence: GB)
  Receive Date: 20171003
  Receipt Date: 20171003
  Transmission Date: 20180321
  Serious: Yes (Other)
  Sender: FDA-Public Use
  Company Number: GB-TORRENT-00015391

PATIENT
  Age: 39 Year
  Sex: Male

DRUGS (2)
  1. QUETIAPINE. [Suspect]
     Active Substance: QUETIAPINE
  2. CLOZARIL [Suspect]
     Active Substance: CLOZAPINE

REACTIONS (1)
  - Epilepsy [Unknown]
